FAERS Safety Report 11333272 (Version 1)
Quarter: 2015Q3

REPORT INFORMATION
  Report Type: Spontaneous
  Country: US (occurrence: US)
  Receive Date: 20150803
  Receipt Date: 20150803
  Transmission Date: 20151125
  Serious: No
  Sender: FDA-Public Use
  Company Number: US-ELI_LILLY_AND_COMPANY-US200712001496

PATIENT
  Sex: Female

DRUGS (5)
  1. ZYPREXA [Suspect]
     Active Substance: OLANZAPINE
     Dosage: 40 MG, UNK
     Route: 048
  2. ZYPREXA [Suspect]
     Active Substance: OLANZAPINE
     Dosage: 60 MG, UNK
     Route: 048
  3. ZYPREXA [Suspect]
     Active Substance: OLANZAPINE
     Indication: BIPOLAR DISORDER
     Dosage: 20 MG, UNK
     Route: 048
  4. ZYPREXA [Suspect]
     Active Substance: OLANZAPINE
     Dosage: 120 MG, UNK
     Route: 048
  5. TEGRETOL [Concomitant]
     Active Substance: CARBAMAZEPINE

REACTIONS (2)
  - Prescribed overdose [Not Recovered/Not Resolved]
  - Medication error [Not Recovered/Not Resolved]
